FAERS Safety Report 7180704-0 (Version None)
Quarter: 2010Q4

REPORT INFORMATION
  Report Type: 
  Country: None (occurrence: None)
  Receive Date: 20101221
  Receipt Date: 20101214
  Transmission Date: 20110411
  Serious: Yes (Death, Hospitalization)
  Sender: FDA-Public Use
  Company Number: US-BAXTER-2010BH030103

PATIENT
  Age: 43 Year
  Sex: Female

DRUGS (4)
  1. HOLOXAN BAXTER [Suspect]
     Indication: OVARIAN CANCER
     Route: 033
     Dates: start: 19910820, end: 19910821
  2. NEUPOGEN [Suspect]
     Indication: NEUTROPENIA
     Route: 042
     Dates: start: 19910826, end: 19910906
  3. CARBOPLATIN [Suspect]
     Indication: OVARIAN CANCER
     Route: 033
     Dates: start: 19910820, end: 19910821
  4. METOCLOPRAMIDE [Concomitant]
     Indication: PRODUCT USED FOR UNKNOWN INDICATION
     Route: 065
     Dates: start: 19910820, end: 19910906

REACTIONS (3)
  - GRANULOCYTOPENIA [None]
  - OVARIAN CANCER [None]
  - THERAPEUTIC RESPONSE DECREASED [None]
